FAERS Safety Report 6608564-4 (Version None)
Quarter: 2010Q1

REPORT INFORMATION
  Report Type: 
  Country: None (occurrence: None)
  Receive Date: 20100301
  Receipt Date: 20100219
  Transmission Date: 20100710
  Serious: Yes (Other)
  Sender: FDA-Public Use
  Company Number: JP-PFIZER INC-2010023461

PATIENT
  Age: 55 Year
  Sex: Male

DRUGS (1)
  1. CADUET [Suspect]
     Route: 048
     Dates: start: 20100210

REACTIONS (1)
  - HYPOGLYCAEMIA [None]
